FAERS Safety Report 5695730-8 (Version None)
Quarter: 2008Q2

REPORT INFORMATION
  Report Type: 
  Country: None (occurrence: None)
  Receive Date: 20080403
  Receipt Date: 20080215
  Transmission Date: 20081010
  Serious: Yes (Life-Threatening, Hospitalization)
  Sender: FDA-Public Use
  Company Number: CFNTY-197

PATIENT
  Age: 44 Year
  Sex: Male

DRUGS (4)
  1. CEFDITOREN PIVOXIL [Suspect]
     Indication: STREPTOCOCCAL INFECTION
     Dosage: 300 MG, PO
     Route: 048
     Dates: start: 20080109, end: 20080117
  2. LOXONIN (LOXOPROFEN SODIUM) [Suspect]
     Indication: MALAISE
     Dosage: 60 MG, PO
     Route: 048
     Dates: start: 20080128, end: 20080130
  3. BIOFERMIN-R (ANTIBIOTIC RESISTANT LACTIC ACID BACTERIAE) [Concomitant]
  4. S. TAC EVE (IBUPROFEN-BASED COLD OTC MEDICINE) [Concomitant]

REACTIONS (11)
  - DRUG ERUPTION [None]
  - DYSPNOEA [None]
  - GENERALISED OEDEMA [None]
  - HAEMODIALYSIS [None]
  - LEGIONELLA SEROLOGY POSITIVE [None]
  - MALAISE [None]
  - PNEUMONIA [None]
  - PULMONARY CONGESTION [None]
  - RENAL FAILURE ACUTE [None]
  - RENAL TUBULAR NECROSIS [None]
  - RESPIRATORY FAILURE [None]
